FAERS Safety Report 9391186 (Version 2)
Quarter: 2013Q3

REPORT INFORMATION
  Report Type: Spontaneous
  Country: AU (occurrence: AU)
  Receive Date: 20130709
  Receipt Date: 20130823
  Transmission Date: 20140515
  Serious: Yes (Death, Other)
  Sender: FDA-Public Use
  Company Number: AU-B.I. PHARMACEUTICALS,INC./RIDGEFIELD-2013-AU-00812AU

PATIENT
  Age: 88 Year
  Sex: Female
  Weight: 48 kg

DRUGS (20)
  1. PRADAXA [Suspect]
     Indication: ATRIAL FIBRILLATION
     Dosage: 220 MG
     Dates: start: 20111019, end: 20130628
  2. ALVESCO [Concomitant]
     Dosage: 320 MCG
     Route: 055
     Dates: start: 20080721
  3. CALTRATE [Concomitant]
     Dosage: 600 MG
     Dates: start: 20030904
  4. COLOXYL [Concomitant]
     Dosage: 100 MG
     Dates: start: 20060318
  5. EFEXOR XR [Concomitant]
     Dosage: 75 MG
     Dates: start: 20070531
  6. ENDONE [Concomitant]
     Dosage: 15 MG
     Dates: start: 20130527
  7. LANOXIN PG [Concomitant]
     Dosage: 62.5 MCG
     Dates: start: 20100305
  8. LASIX [Concomitant]
     Dosage: 40 MG
     Dates: start: 20100305
  9. METROPOLOL [Concomitant]
     Dosage: 50 MG
     Dates: start: 20091029
  10. MIDAZOLAM [Concomitant]
     Dosage: EVERY 4 HOURS PRN (5MG/1ML)
     Route: 051
     Dates: start: 20130627
  11. MORPHINE [Concomitant]
     Dosage: EVERY 4 HOURS (0.25 MLS OF 10/ML)
     Route: 051
     Dates: start: 20130617
  12. OSTELIN VITAMIN D [Concomitant]
     Dosage: 10000 U
     Dates: start: 20070112
  13. PANAMAX [Concomitant]
     Dosage: 3000 MG
     Dates: start: 20000918
  14. PREDNISOLONE [Concomitant]
     Dates: start: 20130206
  15. SEROQUEL [Concomitant]
     Dosage: 12.5 MG
     Dates: start: 20110915
  16. SYSTANE [Concomitant]
     Dosage: 0.4%, 0.3% 1 IN THE MORNING BOTH SIDES
     Route: 047
     Dates: start: 20120516
  17. TEMAZE [Concomitant]
     Dosage: 10 MG
     Dates: start: 20060518
  18. VENTOLIN CFC-FREE [Concomitant]
     Dosage: 600 MCG
     Route: 055
     Dates: start: 20000912
  19. VENTOLIN NEBULES [Concomitant]
     Dosage: 5MG/2.5 ML
     Route: 055
     Dates: start: 20121018
  20. XALATAN [Concomitant]
     Dosage: 50 MCG/ML DROPS
     Route: 047
     Dates: start: 20030305

REACTIONS (3)
  - Non-small cell lung cancer stage IV [Fatal]
  - Insomnia [Unknown]
  - Agitation [Unknown]
